FAERS Safety Report 19624764 (Version 2)
Quarter: 2021Q4

REPORT INFORMATION
  Report Type: Spontaneous
  Country: US (occurrence: US)
  Receive Date: 20210729
  Receipt Date: 20211029
  Transmission Date: 20220303
  Serious: No
  Sender: FDA-Public Use
  Company Number: US-ULTRAGENYX PHARMACEUTICAL INC.-US-UGNX-21-00095

PATIENT
  Age: 23 Year
  Sex: Male

DRUGS (4)
  1. DOJOLVI [Suspect]
     Active Substance: TRIHEPTANOIN
     Indication: Long-chain acyl-coenzyme A dehydrogenase deficiency
     Route: 048
     Dates: start: 20210406
  2. DOJOLVI [Suspect]
     Active Substance: TRIHEPTANOIN
     Indication: Very long-chain acyl-coenzyme A dehydrogenase deficiency
     Route: 048
     Dates: start: 20210411
  3. DOJOLVI [Suspect]
     Active Substance: TRIHEPTANOIN
     Route: 048
     Dates: start: 20210412
  4. DOJOLVI [Suspect]
     Active Substance: TRIHEPTANOIN
     Route: 048

REACTIONS (4)
  - Myalgia [Unknown]
  - Nausea [Recovering/Resolving]
  - Vomiting [Unknown]
  - Abdominal discomfort [Recovered/Resolved with Sequelae]

NARRATIVE: CASE EVENT DATE: 20210412
